FAERS Safety Report 6431440-7 (Version None)
Quarter: 2009Q4

REPORT INFORMATION
  Report Type: 
  Country: None (occurrence: None)
  Receive Date: 20091106
  Receipt Date: 20091102
  Transmission Date: 20100525
  Serious: Yes (Other)
  Sender: FDA-Public Use
  Company Number: PHEH2009US08477

PATIENT
  Age: 89 Year
  Sex: Female
  Weight: 74.376 kg

DRUGS (4)
  1. EXELON [Suspect]
     Indication: DEMENTIA ALZHEIMER'S TYPE
     Dosage: 4.6 MG, UNK
     Route: 062
     Dates: start: 20090514
  2. EXELON [Suspect]
     Dosage: 9.5 MG, QD
     Route: 062
     Dates: start: 20090617
  3. EXELON [Suspect]
     Dosage: 1/2 OF A 9.5 MG PATCH, UNK
     Route: 062
     Dates: start: 20090620, end: 20090622
  4. EXELON [Suspect]
     Dosage: 1/4 OF A 9.5 MG PATCH, UNK
     Route: 062
     Dates: start: 20090623

REACTIONS (9)
  - ASTHENIA [None]
  - BALANCE DISORDER [None]
  - CIRCULATORY COLLAPSE [None]
  - CONFUSIONAL STATE [None]
  - DIZZINESS [None]
  - DRUG INEFFECTIVE [None]
  - HEAD INJURY [None]
  - MALAISE [None]
  - TEARFULNESS [None]
